FAERS Safety Report 20468327 (Version 1)
Quarter: 2022Q1

REPORT INFORMATION
  Report Type: Report from Study
  Country: SE (occurrence: SE)
  Receive Date: 20220214
  Receipt Date: 20220214
  Transmission Date: 20220424
  Serious: Yes (Other)
  Sender: FDA-Public Use
  Company Number: None

PATIENT
  Age: 97 Year
  Sex: Female

DRUGS (4)
  1. FUROSEMIDE [Interacting]
     Active Substance: FUROSEMIDE
     Indication: Cardiac failure
     Route: 048
  2. CIPROFLOXACIN [Interacting]
     Active Substance: CIPROFLOXACIN
     Indication: Urinary tract infection
     Route: 048
  3. ENALAPRIL [Interacting]
     Active Substance: ENALAPRIL
     Indication: Hypertension
     Route: 048
  4. METAMIZOLE [Interacting]
     Active Substance: METAMIZOLE
     Indication: Osteoarthritis
     Route: 048

REACTIONS (3)
  - Acute kidney injury [Recovered/Resolved]
  - Drug interaction [Unknown]
  - Blood creatinine abnormal [Unknown]
